FAERS Safety Report 9179379 (Version 1)
Quarter: 2012Q4

REPORT INFORMATION
  Report Type: 
  Country: US (occurrence: US)
  Receive Date: 20121029
  Receipt Date: 20121029
  Transmission Date: 20130627
  Serious: No
  Sender: FDA-Public Use
  Company Number: US-AMGEN-USASP2012052527

PATIENT
  Age: 59 Year
  Sex: Female
  Weight: 58.96 kg

DRUGS (11)
  1. ENBREL [Suspect]
     Indication: PRODUCT USED FOR UNKNOWN INDICATION
     Dosage: 50 mg, qwk
     Route: 058
  2. CYMBALTA [Concomitant]
     Dosage: 20 mg, UNK
  3. VICODIN [Concomitant]
     Dosage: 500 mg, UNK
  4. VENLAFAXIN [Concomitant]
     Dosage: 25 mg, UNK
  5. SIMVASTATIN [Concomitant]
     Dosage: 10 mg, UNK
  6. HYDROCHLOROTH [Concomitant]
     Dosage: 50 mg, UNK
  7. LEVOTHYROXIN [Concomitant]
     Dosage: 75 mug, UNK
  8. LIOTHYRONINE                       /00143302/ [Concomitant]
     Dosage: 5 mug, UNK
  9. FISH OIL [Concomitant]
     Dosage: UNK
  10. CALCIUM [Concomitant]
     Dosage: 500 UNK, UNK
  11. METHYLPRED [Concomitant]
     Dosage: 8 mg, UNK

REACTIONS (3)
  - Staphylococcal infection [Unknown]
  - Injection site urticaria [Unknown]
  - Injection site erythema [Unknown]
